FAERS Safety Report 7508807-9 (Version None)
Quarter: 2011Q2

REPORT INFORMATION
  Report Type: 
  Country: None (occurrence: None)
  Receive Date: 20110527
  Receipt Date: 20110519
  Transmission Date: 20111010
  Serious: Yes (Death, Hospitalization)
  Sender: FDA-Public Use
  Company Number: DK-SANOFI-AVENTIS-2011SA028631

PATIENT
  Age: 76 Year
  Sex: Male

DRUGS (6)
  1. DIMITONE [Concomitant]
     Route: 048
     Dates: start: 20070101, end: 20110416
  2. TRANDOLAPRIL [Concomitant]
     Route: 048
     Dates: start: 20070101, end: 20110416
  3. ALLOPURINOL [Concomitant]
     Indication: GOUT
     Route: 048
     Dates: start: 20090101, end: 20110416
  4. FUROSEMIDE [Concomitant]
     Indication: DIURETIC THERAPY
     Route: 048
     Dates: start: 20090101, end: 20110416
  5. MULTAQ [Suspect]
     Indication: ATRIAL FIBRILLATION
     Route: 048
     Dates: start: 20100316, end: 20110416
  6. WARFARIN SODIUM [Concomitant]
     Indication: ATRIAL FIBRILLATION
     Dosage: AFTER SCHEDULE (NOS)
     Route: 048
     Dates: start: 20061101, end: 20110416

REACTIONS (2)
  - ATRIAL FIBRILLATION [None]
  - SUDDEN DEATH [None]
